FAERS Safety Report 17661697 (Version 2)
Quarter: 2020Q2

REPORT INFORMATION
  Report Type: Spontaneous
  Country: US (occurrence: US)
  Receive Date: 20200413
  Receipt Date: 20200417
  Transmission Date: 20200713
  Serious: Yes (Death, Hospitalization, Other)
  Sender: FDA-Public Use
  Company Number: US-PERRIGO-20US005218

PATIENT
  Sex: Male

DRUGS (2)
  1. PANTOPRAZOLE [Suspect]
     Active Substance: PANTOPRAZOLE
     Indication: PRODUCT USED FOR UNKNOWN INDICATION
     Dosage: 40 MG, UNKNOWN
     Route: 048
  2. PREVACID 24 HR [Suspect]
     Active Substance: LANSOPRAZOLE
     Indication: GASTROOESOPHAGEAL REFLUX DISEASE
     Dosage: 15 MG, BID
     Route: 065

REACTIONS (24)
  - Diabetic nephropathy [Unknown]
  - Renal failure [Unknown]
  - Polyuria [Unknown]
  - Micturition urgency [Unknown]
  - Haemodialysis [Unknown]
  - Oliguria [Unknown]
  - Chronic kidney disease [Fatal]
  - End stage renal disease [Unknown]
  - Proteinuria [Unknown]
  - Renal impairment [Unknown]
  - Nephropathy [Unknown]
  - Acute kidney injury [Unknown]
  - Pollakiuria [Unknown]
  - Renal tubular necrosis [Unknown]
  - Dialysis [Unknown]
  - Hypertensive nephropathy [Unknown]
  - Device dependence [Unknown]
  - Incontinence [Unknown]
  - Haematuria [Unknown]
  - Nephrosclerosis [Unknown]
  - Glycosuria [Unknown]
  - Dysuria [Unknown]
  - Nocturia [Unknown]
  - Nephrogenic anaemia [Unknown]
